FAERS Safety Report 18494567 (Version 1)
Quarter: 2020Q4

REPORT INFORMATION
  Report Type: Spontaneous
  Country: ES (occurrence: ES)
  Receive Date: 20201112
  Receipt Date: 20201112
  Transmission Date: 20210114
  Serious: Yes (Other)
  Sender: FDA-Public Use
  Company Number: ES-ACCORD-208125

PATIENT
  Age: 80 Year
  Sex: Female

DRUGS (2)
  1. DESVENLAFAXIN/DESVENLAFAXINSUCCINATE [Concomitant]
     Active Substance: DESVENLAFAXINE SUCCINATE
     Indication: DEPRESSION
     Dosage: STRENGTH: 50 MG, 28 TABLETS MODIFIED RELEASE
     Dates: start: 20200821
  2. TRAZODONE [Suspect]
     Active Substance: TRAZODONE HYDROCHLORIDE
     Route: 048
     Dates: start: 20201027, end: 20201027

REACTIONS (4)
  - Vomiting [Recovering/Resolving]
  - Fall [Unknown]
  - Suicide attempt [Unknown]
  - Nausea [Recovering/Resolving]

NARRATIVE: CASE EVENT DATE: 20201027
